FAERS Safety Report 4695465-4 (Version None)
Quarter: 2005Q2

REPORT INFORMATION
  Report Type: 
  Country: None (occurrence: None)
  Receive Date: 20050620
  Receipt Date: 20050620
  Transmission Date: 20051028
  Serious: No
  Sender: FDA-Public Use
  Company Number: None

PATIENT
  Sex: Male
  Weight: 113 kg

DRUGS (2)
  1. CYTARABINE [Suspect]
     Dosage: 1500MG/M2 IV EVERY 12 HOURS DAYS 1-6
     Route: 042
     Dates: start: 20050310, end: 20050607
  2. GCSF [Suspect]
     Dosage: 480 MCG SQ DAILY UNTIL ANC }500 FOR 3 CONSECUTIVE DAYS
     Route: 058

REACTIONS (13)
  - ARTHROPOD BITE [None]
  - AURICULAR SWELLING [None]
  - EAR CANAL ERYTHEMA [None]
  - FEELING HOT [None]
  - IATROGENIC INFECTION [None]
  - NECK PAIN [None]
  - NEUTROPENIA [None]
  - OEDEMA PERIPHERAL [None]
  - OTITIS EXTERNA [None]
  - PAIN [None]
  - PAIN IN EXTREMITY [None]
  - PSEUDOMONAS INFECTION [None]
  - SWELLING [None]
